FAERS Safety Report 10737771 (Version 2)
Quarter: 2015Q2

REPORT INFORMATION
  Report Type: Spontaneous
  Country: US (occurrence: US)
  Receive Date: 20150126
  Receipt Date: 20150417
  Transmission Date: 20150821
  Serious: Yes (Hospitalization, Disabling, Other)
  Sender: FDA-Public Use
  Company Number: US-ENDO PHARMACEUTICALS INC.-FORT20150013

PATIENT
  Age: 53 Year
  Sex: Male
  Weight: 72.64 kg

DRUGS (14)
  1. DEPO-TESTOSTERONE [Suspect]
     Active Substance: TESTOSTERONE CYPIONATE
     Indication: BLOOD TESTOSTERONE DECREASED
     Route: 030
     Dates: start: 20130204, end: 20140320
  2. NEURONTIN [Concomitant]
     Active Substance: GABAPENTIN
     Indication: NEURALGIA
     Route: 048
  3. DURAGESIC [Concomitant]
     Active Substance: FENTANYL
     Indication: PAIN
     Route: 062
     Dates: start: 20130621
  4. FISH OIL [Concomitant]
     Active Substance: FISH OIL
     Indication: PRODUCT USED FOR UNKNOWN INDICATION
     Route: 048
  5. FORTESTA [Suspect]
     Active Substance: TESTOSTERONE
     Indication: HYPOGONADISM
  6. ELAVIL [Concomitant]
     Active Substance: AMITRIPTYLINE HYDROCHLORIDE
     Indication: DEPRESSION
     Route: 048
  7. PROTONIX [Concomitant]
     Active Substance: PANTOPRAZOLE SODIUM
     Indication: GASTROOESOPHAGEAL REFLUX DISEASE
     Route: 048
  8. FORTESTA [Suspect]
     Active Substance: TESTOSTERONE
     Indication: BLOOD TESTOSTERONE DECREASED
     Route: 061
     Dates: start: 20121003, end: 20140318
  9. FLONASE [Concomitant]
     Active Substance: FLUTICASONE PROPIONATE
     Indication: RHINITIS ALLERGIC
     Route: 045
  10. DEPO-TESTOSTERONE [Suspect]
     Active Substance: TESTOSTERONE CYPIONATE
     Indication: HYPOGONADISM
  11. PROVENTIL [Concomitant]
     Active Substance: ALBUTEROL
     Indication: CHRONIC OBSTRUCTIVE PULMONARY DISEASE
     Route: 055
  12. XANAX [Concomitant]
     Active Substance: ALPRAZOLAM
     Indication: GENERALISED ANXIETY DISORDER
     Route: 048
  13. WELLBUTRIN XL [Concomitant]
     Active Substance: BUPROPION HYDROCHLORIDE
     Indication: DEPRESSION
     Route: 048
  14. VIAGRA [Concomitant]
     Active Substance: SILDENAFIL CITRATE
     Indication: ERECTILE DYSFUNCTION
     Route: 048

REACTIONS (36)
  - Transient ischaemic attack [Not Recovered/Not Resolved]
  - Lacunar infarction [None]
  - Hepatic steatosis [None]
  - Cerebral small vessel ischaemic disease [None]
  - Carotid artery stenosis [None]
  - Product quality issue [None]
  - Urinary tract obstruction [None]
  - Seizure [Unknown]
  - Life expectancy shortened [Not Recovered/Not Resolved]
  - Loss of consciousness [None]
  - Anxiety [Not Recovered/Not Resolved]
  - Pyrexia [None]
  - Hypoaesthesia [None]
  - Grip strength decreased [None]
  - Aortic arteriosclerosis [None]
  - Hepatomegaly [None]
  - Arteriosclerosis coronary artery [Unknown]
  - Ataxia [Unknown]
  - Amnesia [None]
  - Confusional state [None]
  - Carotid artery occlusion [None]
  - Neurogenic bladder [Unknown]
  - Pneumonia [Unknown]
  - Bundle branch block right [Recovered/Resolved]
  - Fall [None]
  - Rhabdomyolysis [Unknown]
  - Multiple injuries [None]
  - Hypertension [None]
  - Cerebrovascular disorder [None]
  - Cerebrovascular accident [Not Recovered/Not Resolved]
  - Pain [Not Recovered/Not Resolved]
  - Quality of life decreased [Not Recovered/Not Resolved]
  - Hypokalaemia [Unknown]
  - Influenza [None]
  - Muscular weakness [None]
  - Chest pain [None]

NARRATIVE: CASE EVENT DATE: 20130307
